FAERS Safety Report 6217181-X (Version None)
Quarter: 2009Q2

REPORT INFORMATION
  Report Type: 
  Country: None (occurrence: None)
  Receive Date: 20090608
  Receipt Date: 20090528
  Transmission Date: 20091009
  Serious: Yes (Other)
  Sender: FDA-Public Use
  Company Number: US-PFIZER INC-2006096256

PATIENT
  Age: 50 Year

DRUGS (7)
  1. PROVERA [Suspect]
     Indication: HORMONE REPLACEMENT THERAPY
     Dosage: 2.5 MG, UNK
     Route: 048
     Dates: start: 19950101, end: 20030101
  2. PREMARIN [Suspect]
     Indication: HORMONE REPLACEMENT THERAPY
     Dosage: 0.625 MG, UNK
     Route: 065
     Dates: start: 19950101, end: 20030101
  3. PREMPRO [Suspect]
     Indication: HORMONE REPLACEMENT THERAPY
     Dosage: 0.625/2.5 MG
  4. XANAX [Concomitant]
     Indication: PANIC DISORDER
     Dosage: UNK
     Dates: start: 19970101
  5. LEXAPRO [Concomitant]
     Indication: ANXIETY
     Dosage: UNK
     Dates: start: 20000101
  6. LEXAPRO [Concomitant]
     Indication: DEPRESSION
  7. LEXAPRO [Concomitant]
     Indication: POST-TRAUMATIC STRESS DISORDER

REACTIONS (1)
  - BREAST CANCER [None]
